FAERS Safety Report 5245595-3 (Version None)
Quarter: 2007Q1

REPORT INFORMATION
  Report Type: 
  Country: None (occurrence: None)
  Receive Date: 20070223
  Receipt Date: 20070216
  Transmission Date: 20070707
  Serious: Yes (Life-Threatening, Hospitalization)
  Sender: FDA-Public Use
  Company Number: JP-PFIZER INC-2007010491

PATIENT
  Sex: Male
  Weight: 43.6 kg

DRUGS (6)
  1. CARDENALIN [Suspect]
     Route: 048
  2. LIPITOR [Suspect]
     Route: 048
  3. CAPTOPRIL [Suspect]
     Route: 048
  4. HARNAL [Concomitant]
     Route: 048
  5. LASIX [Concomitant]
     Route: 048
  6. NIFE - SLOW RELEASE [Concomitant]
     Route: 048

REACTIONS (1)
  - HYPOGLYCAEMIA [None]
